FAERS Safety Report 24831262 (Version 1)
Quarter: 2025Q1

REPORT INFORMATION
  Report Type: Spontaneous
  Country: US (occurrence: US)
  Receive Date: 20250110
  Receipt Date: 20250110
  Transmission Date: 20250408
  Serious: Yes (Other)
  Sender: INSUD PHARMA
  Company Number: US-INSUD PHARMA-2501US00070

PATIENT

DRUGS (2)
  1. NUVESSA [Suspect]
     Active Substance: METRONIDAZOLE
     Indication: Infection prophylaxis
     Dosage: 500 MILLIGRAM, EVERY 8 HOURS
     Route: 042
  2. CEFTRIAXONE [Concomitant]
     Active Substance: CEFTRIAXONE
     Indication: Infection prophylaxis
     Dosage: 1 GRAM, EVERY 24 HOURS

REACTIONS (1)
  - Hallucination, visual [Recovered/Resolved]
